FAERS Safety Report 12631204 (Version 2)
Quarter: 2016Q3

REPORT INFORMATION
  Report Type: Spontaneous
  Country: US (occurrence: US)
  Receive Date: 20160808
  Receipt Date: 20160808
  Transmission Date: 20161109
  Serious: No
  Sender: FDA-Public Use
  Company Number: US-BEH-2015052779

PATIENT
  Sex: Female
  Weight: 55 kg

DRUGS (25)
  1. ACETAMINOPHEN. [Concomitant]
     Active Substance: ACETAMINOPHEN
  2. ANAPROX [Concomitant]
     Active Substance: NAPROXEN SODIUM
  3. ZYRTEC [Concomitant]
     Active Substance: CETIRIZINE HYDROCHLORIDE
  4. QVAR [Concomitant]
     Active Substance: BECLOMETHASONE DIPROPIONATE
  5. COLACE [Concomitant]
     Active Substance: DOCUSATE SODIUM
  6. TRAZODONE [Concomitant]
     Active Substance: TRAZODONE HYDROCHLORIDE
  7. ROLAIDS [Concomitant]
     Active Substance: CALCIUM CARBONATE\MAGNESIUM HYDROXIDE
  8. LIDOCAINE/ PRILOCAINE [Concomitant]
  9. PROBIOTIC [Concomitant]
     Active Substance: PROBIOTICS NOS
  10. XOPENEX [Concomitant]
     Active Substance: LEVALBUTEROL HYDROCHLORIDE
  11. HIZENTRA [Suspect]
     Active Substance: HUMAN IMMUNOGLOBULIN G
     Indication: CONGENITAL HYPOGAMMAGLOBULINAEMIA
     Route: 058
  12. EFFEXOR [Concomitant]
     Active Substance: VENLAFAXINE HYDROCHLORIDE
  13. DIPHENHYDRAMINE. [Concomitant]
     Active Substance: DIPHENHYDRAMINE
  14. ACTIGALL [Concomitant]
     Active Substance: URSODIOL
  15. PREDNISONE. [Concomitant]
     Active Substance: PREDNISONE
  16. EPIPEN [Concomitant]
     Active Substance: EPINEPHRINE
  17. LMX [Concomitant]
     Active Substance: LIDOCAINE
  18. ROBAXIN [Concomitant]
     Active Substance: METHOCARBAMOL
  19. ENTOCORT [Concomitant]
     Active Substance: BUDESONIDE
  20. KLONOPIN [Concomitant]
     Active Substance: CLONAZEPAM
  21. PANTOPRAZOLE [Concomitant]
     Active Substance: PANTOPRAZOLE SODIUM
  22. LAMICTAL [Concomitant]
     Active Substance: LAMOTRIGINE
  23. VITAMIN D [Concomitant]
     Active Substance: CHOLECALCIFEROL
  24. SINGULAIR [Concomitant]
     Active Substance: MONTELUKAST SODIUM
  25. MILK OF MAGNESIA [Concomitant]
     Active Substance: MAGNESIUM HYDROXIDE

REACTIONS (2)
  - Infusion site nodule [Unknown]
  - Influenza like illness [Unknown]
